FAERS Safety Report 8120417-1 (Version None)
Quarter: 2012Q1

REPORT INFORMATION
  Report Type: 
  Country: None (occurrence: None)
  Receive Date: 20120207
  Receipt Date: 20120123
  Transmission Date: 20120608
  Serious: Yes (Hospitalization)
  Sender: FDA-Public Use
  Company Number: SE-PFIZER INC-K201100980

PATIENT
  Age: 84 Year
  Sex: Female

DRUGS (10)
  1. FUROSEMIDE [Concomitant]
     Dosage: UNK
  2. ALTACE [Suspect]
     Indication: ESSENTIAL HYPERTENSION
     Dosage: ^0.5 MG,^ UNK
     Route: 048
     Dates: end: 20110707
  3. CLINDAMYCIN HCL [Concomitant]
     Dosage: UNK
  4. TIPAROL [Concomitant]
     Dosage: UNK
  5. FELODIPINE [Concomitant]
     Dosage: UNK
  6. METOPROLOL TARTRATE [Suspect]
     Indication: ESSENTIAL HYPERTENSION
     Dosage: UNK
     Route: 048
     Dates: end: 20110707
  7. SPIRIVA [Concomitant]
     Dosage: UNK
  8. ACETAMINOPHEN [Concomitant]
     Dosage: UNK
  9. FLUTICASONE PROPIONATE [Concomitant]
     Dosage: UNK
  10. AMITRIPTYLINE HCL [Concomitant]
     Dosage: UNK

REACTIONS (2)
  - BRADYCARDIA [None]
  - BLOOD CREATININE INCREASED [None]
